FAERS Safety Report 12515532 (Version 2)
Quarter: 2016Q3

REPORT INFORMATION
  Report Type: Spontaneous
  Country: US (occurrence: US)
  Receive Date: 20160630
  Receipt Date: 20160713
  Transmission Date: 20161109
  Serious: Yes (Hospitalization)
  Sender: FDA-Public Use
  Company Number: US-JNJFOC-20160502952

PATIENT
  Age: 34 Year
  Sex: Male

DRUGS (1)
  1. XARELTO [Suspect]
     Active Substance: RIVAROXABAN
     Indication: PULMONARY EMBOLISM
     Dosage: 15 MG FOR 18 DAYS THEN 20 MG
     Route: 048
     Dates: start: 20150819, end: 20150909

REACTIONS (4)
  - Cellulitis [Recovering/Resolving]
  - Retroperitoneal haematoma [Recovering/Resolving]
  - Abdominal wall haematoma [Recovering/Resolving]
  - Haematoma infection [Recovered/Resolved]

NARRATIVE: CASE EVENT DATE: 201509
